FAERS Safety Report 6037704-3 (Version None)
Quarter: 2009Q1

REPORT INFORMATION
  Report Type: 
  Country: None (occurrence: None)
  Receive Date: 20090113
  Receipt Date: 20090111
  Transmission Date: 20090719
  Serious: Yes (Death)
  Sender: FDA-Public Use
  Company Number: DILUS-07-1086

PATIENT
  Age: 18 Year
  Sex: Male

DRUGS (4)
  1. DIPRIVAN [Suspect]
     Indication: DRUG USE FOR UNKNOWN INDICATION
     Dosage: HOSPITAL DAYS 5-8, INTRAVENOUS
  2. DIPRIVAN [Suspect]
     Indication: SEDATION
     Dosage: HOSPITAL DAYS 5-8, INTRAVENOUS
  3. MORPHINE [Concomitant]
  4. VASPRESSORS [Concomitant]

REACTIONS (8)
  - ANURIA [None]
  - ARRHYTHMIA [None]
  - CARDIAC ARREST [None]
  - GENERAL PHYSICAL HEALTH DETERIORATION [None]
  - HAEMODYNAMIC INSTABILITY [None]
  - INTRACRANIAL PRESSURE INCREASED [None]
  - METABOLIC ACIDOSIS [None]
  - PROPOFOL INFUSION SYNDROME [None]
